FAERS Safety Report 13128512 (Version 1)
Quarter: 2017Q1

REPORT INFORMATION
  Report Type: Spontaneous
  Country: JP (occurrence: JP)
  Receive Date: 20170118
  Receipt Date: 20170118
  Transmission Date: 20170428
  Serious: Yes (Other)
  Sender: FDA-Public Use
  Company Number: JP-009507513-1701JPN006896

PATIENT
  Age: 90 Year
  Sex: Female
  Weight: 35 kg

DRUGS (3)
  1. FLUTIDE [Concomitant]
     Active Substance: FLUTICASONE PROPIONATE
     Dosage: UNK
     Route: 048
  2. JANUVIA [Suspect]
     Active Substance: SITAGLIPTIN PHOSPHATE
     Dosage: 100 MG, UNK
     Route: 048
     Dates: start: 2012
  3. BASEN [Concomitant]
     Active Substance: VOGLIBOSE
     Dosage: UNK
     Route: 048

REACTIONS (7)
  - Weight decreased [Unknown]
  - Cardiac disorder [Unknown]
  - Constipation [Unknown]
  - Hypoglycaemia [Unknown]
  - Muscle twitching [Recovered/Resolved]
  - Delirium [Unknown]
  - Decreased appetite [Unknown]
